FAERS Safety Report 13044453 (Version 3)
Quarter: 2017Q1

REPORT INFORMATION
  Report Type: Spontaneous
  Country: DE (occurrence: DE)
  Receive Date: 20161220
  Receipt Date: 20170114
  Transmission Date: 20170428
  Serious: Yes (Hospitalization)
  Sender: FDA-Public Use
  Company Number: DE-009507513-1611DEU007853

PATIENT
  Age: 77 Year
  Sex: Female
  Weight: 61 kg

DRUGS (1)
  1. EZETROL [Suspect]
     Active Substance: EZETIMIBE
     Indication: LOW DENSITY LIPOPROTEIN INCREASED
     Dosage: 10 MG, IN THE EVENING
     Route: 048
     Dates: start: 20160929, end: 20161115

REACTIONS (19)
  - Tongue discolouration [Recovering/Resolving]
  - Pharyngeal erythema [Recovering/Resolving]
  - Cheilitis [Recovering/Resolving]
  - Oral mucosal erythema [Recovered/Resolved]
  - Swelling [Recovered/Resolved]
  - Myalgia [Unknown]
  - Lip swelling [Recovered/Resolved]
  - Pharyngeal oedema [Recovered/Resolved]
  - Mouth swelling [Recovered/Resolved]
  - Musculoskeletal pain [Unknown]
  - Mouth swelling [Recovered/Resolved]
  - Pharyngeal oedema [Recovered/Resolved]
  - Lip swelling [Recovered/Resolved]
  - Swollen tongue [Recovered/Resolved]
  - Oral mucosal erythema [Recovering/Resolving]
  - Swollen tongue [Recovered/Resolved]
  - Cheilitis [Recovered/Resolved]
  - Tongue discolouration [Recovered/Resolved]
  - Pharyngeal erythema [Recovered/Resolved]

NARRATIVE: CASE EVENT DATE: 201610
